FAERS Safety Report 8923766 (Version 1)
Quarter: 2012Q4

REPORT INFORMATION
  Report Type: 
  Country: US (occurrence: US)
  Receive Date: 20121126
  Receipt Date: 20121126
  Transmission Date: 20130627
  Serious: Yes (Hospitalization)
  Sender: FDA-Public Use
  Company Number: US-BAYER-2012-121846

PATIENT
  Age: 21 Year
  Sex: Female
  Weight: 68.48 kg

DRUGS (16)
  1. YAZ [Suspect]
  2. CEPHALEXIN [Concomitant]
     Dosage: 500 mg, UNK
     Route: 048
  3. ASCORBIC ACID [Concomitant]
     Dosage: 500 mg, BID
     Route: 048
  4. COLACE [Concomitant]
     Dosage: 100 mg, BID
     Route: 048
  5. PEPCID [Concomitant]
     Dosage: 20 mg, BID
  6. FERROUS SULFATE [Concomitant]
     Dosage: 325 mg, TID
     Route: 048
  7. HYDROCORTISONE [Concomitant]
     Dosage: 0.2 mg, BID
     Route: 048
  8. ARIXTRA [Concomitant]
     Dosage: 2.5 mg, daily
     Route: 058
  9. PRAVASTATIN [Concomitant]
     Dosage: 40 mg, UNK
     Route: 048
  10. SODIUM CHLORIDE [Concomitant]
     Dosage: 3 g, TID, with meal
     Route: 048
  11. ZOFRAN [Concomitant]
     Dosage: UNK
     Route: 042
     Dates: start: 20100624
  12. NIMODIPINE [Concomitant]
     Dosage: 60 mg
     Route: 048
     Dates: start: 20100624
  13. COMPAZINE [Concomitant]
     Dosage: UNK
     Route: 042
     Dates: start: 20100624
  14. MORPHINE [Concomitant]
     Dosage: UNK
     Dates: start: 20100624
  15. DILANTIN [Concomitant]
     Dosage: UNK
     Dates: start: 20100624
  16. ANCEF [Concomitant]
     Dosage: UNK
     Dates: start: 20100624

REACTIONS (1)
  - Subarachnoid haemorrhage [Recovered/Resolved]
